FAERS Safety Report 4933931-4 (Version None)
Quarter: 2006Q1

REPORT INFORMATION
  Report Type: 
  Country: None (occurrence: None)
  Receive Date: 20060307
  Receipt Date: 20060220
  Transmission Date: 20060701
  Serious: Yes (Hospitalization, Disabling, Other)
  Sender: FDA-Public Use
  Company Number: GB-BOEHRINGER INGELHEIM PHARMACEUTICALS, INC.-2006-UK-00656UK

PATIENT
  Age: 85 Year
  Sex: Male

DRUGS (9)
  1. DIPYRIDAMOLE [Suspect]
     Route: 048
  2. ASPIRIN [Suspect]
     Route: 048
  3. PIROXICAM [Suspect]
     Route: 048
     Dates: start: 20041101
  4. HYDROXYCOBALAMIN [Concomitant]
     Dosage: 1MG  ?EVERY 3 MONTHS
     Route: 030
  5. LOPERAMIDE [Concomitant]
     Route: 048
  6. FUROSEMIDE [Concomitant]
     Route: 048
  7. GTN-S [Concomitant]
     Route: 060
  8. DILTIAZEM HCL [Concomitant]
     Route: 048
  9. CO-CARELDOPA [Concomitant]
     Dosage: TWICE DAILY
     Route: 048

REACTIONS (1)
  - VITREOUS HAEMORRHAGE [None]
